FAERS Safety Report 15628473 (Version 1)
Quarter: 2018Q4

REPORT INFORMATION
  Report Type: Spontaneous
  Country: US (occurrence: US)
  Receive Date: 20181116
  Receipt Date: 20181116
  Transmission Date: 20190205
  Serious: Yes (Other)
  Sender: FDA-Public Use
  Company Number: US-SHIRE-US201844064

PATIENT
  Age: 76 Year
  Sex: Female

DRUGS (1)
  1. GATTEX [Suspect]
     Active Substance: TEDUGLUTIDE\WATER
     Indication: SHORT-BOWEL SYNDROME
     Dosage: 0.375 UNK, 1X/DAY:QD
     Route: 065
     Dates: start: 20181106

REACTIONS (2)
  - Urinary tract infection [Unknown]
  - Fluid retention [Unknown]

NARRATIVE: CASE EVENT DATE: 20181108
